FAERS Safety Report 6192507-4 (Version None)
Quarter: 2009Q2

REPORT INFORMATION
  Report Type: 
  Country: None (occurrence: None)
  Receive Date: 20090518
  Receipt Date: 20090506
  Transmission Date: 20091009
  Serious: Yes (Other)
  Sender: FDA-Public Use
  Company Number: PHHY2009MX17318

PATIENT
  Sex: Female

DRUGS (1)
  1. TRILEPTAL [Suspect]
     Indication: EPILEPSY
     Dosage: 2.5 TABLETS (600 MG) PER DAY
     Route: 048
     Dates: start: 20070401

REACTIONS (1)
  - CONDITION AGGRAVATED [None]
